FAERS Safety Report 10486741 (Version 1)
Quarter: 2014Q3

REPORT INFORMATION
  Report Type: Spontaneous
  Country: US (occurrence: None)
  Receive Date: 20140930
  Receipt Date: 20140930
  Transmission Date: 20150326
  Serious: Yes (Hospitalization)
  Sender: FDA-Public Use
  Company Number: None

PATIENT
  Age: 54 Year
  Sex: Male
  Weight: 61.1 kg

DRUGS (2)
  1. OXCARBAZEPINE. [Suspect]
     Active Substance: OXCARBAZEPINE
     Indication: CONVULSION
     Route: 048
     Dates: start: 20140506, end: 20140523
  2. LAMTOTRIGINE [Suspect]
     Active Substance: LAMOTRIGINE
     Indication: CONVULSION
     Route: 048
     Dates: start: 20140508, end: 20140523

REACTIONS (1)
  - Drug reaction with eosinophilia and systemic symptoms [None]

NARRATIVE: CASE EVENT DATE: 20140522
